FAERS Safety Report 8372352-1 (Version None)
Quarter: 2012Q2

REPORT INFORMATION
  Report Type: 
  Country: None (occurrence: None)
  Receive Date: 20120521
  Receipt Date: 20120517
  Transmission Date: 20120825
  Serious: No
  Sender: FDA-Public Use
  Company Number: US-PFIZER INC-2012120524

PATIENT
  Sex: Male

DRUGS (4)
  1. CHLORDIAZEPOXIDE [Concomitant]
     Dosage: UNK
  2. IBUPROFEN (ADVIL) [Concomitant]
     Dosage: UNK
  3. ALPRAZOLAM [Concomitant]
     Dosage: UNK
  4. SUTENT [Suspect]
     Indication: COLON CANCER
     Dosage: 50 MG, 1X/DAY
     Route: 048

REACTIONS (5)
  - BACK PAIN [None]
  - NEUROPATHY PERIPHERAL [None]
  - PAIN [None]
  - DECREASED APPETITE [None]
  - NAUSEA [None]
